FAERS Safety Report 10196490 (Version 1)
Quarter: 2014Q2

REPORT INFORMATION
  Report Type: Spontaneous
  Country: US (occurrence: None)
  Receive Date: 20140523
  Receipt Date: 20140523
  Transmission Date: 20141212
  Serious: Yes (Hospitalization)
  Sender: FDA-Public Use
  Company Number: None

PATIENT
  Age: 61 Year
  Sex: Male
  Weight: 1.27 kg

DRUGS (5)
  1. QSYMIA [Suspect]
     Indication: OBESITY
     Route: 048
     Dates: start: 20140203, end: 20140513
  2. QSYMIA [Suspect]
     Indication: OBESITY
     Route: 048
     Dates: start: 20140120, end: 20140203
  3. AMLODIPINE [Concomitant]
  4. ALPRAZOLAM [Concomitant]
  5. ATORVASTATIN [Concomitant]

REACTIONS (3)
  - Dizziness [None]
  - Loss of consciousness [None]
  - Atrioventricular block complete [None]
